FAERS Safety Report 13980294 (Version 2)
Quarter: 2017Q3

REPORT INFORMATION
  Report Type: Report from Study
  Country: None (occurrence: HU)
  Receive Date: 20170917
  Receipt Date: 20170919
  Transmission Date: 20171128
  Serious: Yes (Hospitalization)
  Sender: FDA-Public Use
  Company Number: HU-ABBVIE-17K-076-2102000-00

PATIENT
  Age: 78 Year
  Sex: Female

DRUGS (11)
  1. REQUIP [Concomitant]
     Active Substance: ROPINIROLE HYDROCHLORIDE
     Indication: PARKINSON^S DISEASE
     Dosage: ONE TABLET IN THE EVENING
     Route: 048
     Dates: start: 2011
  2. VIREGYT [Concomitant]
     Indication: PARKINSON^S DISEASE
     Dosage: ONE TO ONE TABLET IN THE MORNING AND AT NOON
     Route: 048
     Dates: start: 2016
  3. DUODOPA [Suspect]
     Active Substance: CARBIDOPA\LEVODOPA
     Indication: PARKINSON^S DISEASE
     Dosage: MORNING DOSE 4.5ML; CONTINUOUS DOSE 2.3ML/H;EXTRA DOSE 1ML
     Route: 050
     Dates: start: 20120512
  4. DETRALEX [Concomitant]
     Active Substance: DIOSMIN\HESPERIDIN
     Indication: PERIPHERAL VENOUS DISEASE
     Route: 048
     Dates: start: 201705
  5. PRETANIX KOMB FORTE [Concomitant]
     Indication: HYPERTENSION
     Dosage: 8/2.5MG, 0.5 TABLET IN THE EVENING
     Route: 048
  6. PANTOPRAZOLE [Concomitant]
     Active Substance: PANTOPRAZOLE
     Indication: PROPHYLAXIS
  7. COVEREX AS KOMB [Concomitant]
     Indication: HYPERTENSION
     Dosage: 1 TABLET IN THE MORNING
     Route: 048
     Dates: start: 2016
  8. APRANAX [Concomitant]
     Active Substance: NAPROXEN
     Indication: ANALGESIC THERAPY
     Dosage: 1 TABLET IN THE MORNING
     Route: 048
     Dates: start: 201607
  9. PANTOPRAZOLE [Concomitant]
     Active Substance: PANTOPRAZOLE
     Indication: GASTRIC DISORDER
     Dosage: 1 TABLET AT NOON
     Route: 048
     Dates: start: 201606
  10. ASACTAL [Concomitant]
     Active Substance: ASPIRIN
     Indication: THROMBOSIS PROPHYLAXIS
     Dosage: ONE TABLET AT NOON
     Route: 048
     Dates: start: 201612
  11. GABAGAMMA [Concomitant]
     Active Substance: GABAPENTIN
     Indication: NEUROPATHY PERIPHERAL
     Route: 048
     Dates: start: 2014

REACTIONS (5)
  - Occult blood positive [Recovered/Resolved]
  - Blood pressure fluctuation [Recovering/Resolving]
  - Abdominal pain [Recovering/Resolving]
  - Abdominal distension [Recovered/Resolved]
  - Nausea [Recovered/Resolved]

NARRATIVE: CASE EVENT DATE: 201707
